FAERS Safety Report 9165660 (Version 2)
Quarter: 2013Q2

REPORT INFORMATION
  Report Type: Spontaneous
  Country: CA (occurrence: CA)
  Receive Date: 20130315
  Receipt Date: 20130416
  Transmission Date: 20140414
  Serious: Yes (Hospitalization, Other)
  Sender: FDA-Public Use
  Company Number: CA-ASTRAZENECA-2013SE16295

PATIENT
  Age: 43 Year
  Sex: Female

DRUGS (6)
  1. SYMBICORT SMART [Suspect]
     Indication: ASTHMA
     Dosage: UNKNOWN
     Route: 055
     Dates: start: 201105
  2. SYMBICORT SMART [Suspect]
     Indication: ASTHMA
     Dosage: 400 MCG, BID
     Route: 055
     Dates: start: 201108
  3. SYMBICORT SMART [Suspect]
     Indication: ASTHMA
     Dosage: INCREASED 4 DOSES, DAILY
     Route: 055
  4. SYMBICORT SMART [Suspect]
     Indication: ASTHMA
     Dosage: TWO DOSES , BID
     Route: 055
     Dates: start: 20130307
  5. SYMBICORT SMART [Suspect]
     Indication: ASTHMA
     Dosage: AS REQUIRED
     Route: 055
  6. SALBUTAMOL [Concomitant]
     Indication: ASTHMA

REACTIONS (2)
  - Asthma [Recovering/Resolving]
  - Drug dose omission [Unknown]
